FAERS Safety Report 4915763-6 (Version None)
Quarter: 2006Q1

REPORT INFORMATION
  Report Type: 
  Country: None (occurrence: None)
  Receive Date: 20060214
  Receipt Date: 20060130
  Transmission Date: 20060701
  Serious: Yes (Other)
  Sender: FDA-Public Use
  Company Number: US200601005142

PATIENT

DRUGS (1)
  1. XIGRIS(DROTRECOGIN ALFA (ACTIVATED)) VIAL [Suspect]
     Indication: SEPSIS

REACTIONS (1)
  - INTERNATIONAL NORMALISED RATIO INCREASED [None]
